FAERS Safety Report 8534519-9 (Version None)
Quarter: 2012Q3

REPORT INFORMATION
  Report Type: 
  Country: None (occurrence: None)
  Receive Date: 20120724
  Receipt Date: 20120712
  Transmission Date: 20120928
  Serious: Yes (Hospitalization, Other)
  Sender: FDA-Public Use
  Company Number: US-009507513-1108USA02949

PATIENT

DRUGS (3)
  1. FOSAMAX [Suspect]
     Dosage: 70 MG, UNK
     Route: 048
     Dates: start: 20090601, end: 20090801
  2. FOSAMAX [Suspect]
     Indication: OSTEOPENIA
     Dosage: 70 MG, UNK
     Route: 048
     Dates: start: 20000301, end: 20090501
  3. FOSAMAX [Suspect]
     Indication: OSTEOPOROSIS

REACTIONS (23)
  - FEMUR FRACTURE [None]
  - BLOOD POTASSIUM DECREASED [None]
  - MUSCULOSKELETAL DISORDER [None]
  - HYPERTENSIVE HEART DISEASE [None]
  - DEFORMITY THORAX [None]
  - ASTHMA [None]
  - FALL [None]
  - BACK PAIN [None]
  - HOT FLUSH [None]
  - HYPERTENSION [None]
  - SEPSIS [None]
  - OSTEOARTHRITIS [None]
  - SPUTUM INCREASED [None]
  - CELLULITIS [None]
  - BRONCHITIS [None]
  - PULMONARY FIBROSIS [None]
  - FOOT FRACTURE [None]
  - ARTHRALGIA [None]
  - COUGH [None]
  - LEUKOCYTOSIS [None]
  - CARDIAC DISORDER [None]
  - ARRHYTHMIA [None]
  - GASTROOESOPHAGEAL REFLUX DISEASE [None]
